FAERS Safety Report 23553162 (Version 2)
Quarter: 2024Q1

REPORT INFORMATION
  Report Type: Spontaneous
  Country: CO (occurrence: CO)
  Receive Date: 20240222
  Receipt Date: 20240229
  Transmission Date: 20240409
  Serious: Yes (Hospitalization)
  Sender: FDA-Public Use
  Company Number: CO-002147023-NVSC2022CO127002

PATIENT
  Age: 49 Year
  Sex: Female
  Weight: 82 kg

DRUGS (24)
  1. MONTELUKAST [Suspect]
     Active Substance: MONTELUKAST SODIUM
     Indication: Product used for unknown indication
     Dosage: 4 MG (TAKING IT FOR 5 DAYS APPROXIMATELY)
     Route: 065
  2. PREGABALIN [Suspect]
     Active Substance: PREGABALIN
     Indication: Product used for unknown indication
     Dosage: 1 DOSAGE FORM, QD (DAILY (BETWEEN 5 AND 6 PM))
     Route: 048
     Dates: start: 2021
  3. PREGABALIN [Suspect]
     Active Substance: PREGABALIN
     Dosage: 75 MG, QD
     Route: 065
  4. PREGABALIN [Suspect]
     Active Substance: PREGABALIN
     Dosage: UNK, PRN
     Route: 048
  5. XOLAIR [Suspect]
     Active Substance: OMALIZUMAB
     Dosage: 300 MG, QMO
     Route: 058
  6. XOLAIR [Suspect]
     Active Substance: OMALIZUMAB
     Indication: Idiopathic urticaria
     Dosage: 300 MG, QMO (300 MG (2 OF 150MG) (UNDER TREATMENT FOR FOUR MORE MONTHS)
     Route: 058
     Dates: start: 20220429
  7. XOLAIR [Suspect]
     Active Substance: OMALIZUMAB
     Dosage: 300 MG, Q2MO
     Route: 058
     Dates: start: 202204
  8. XOLAIR [Suspect]
     Active Substance: OMALIZUMAB
     Indication: Idiopathic urticaria
     Dosage: 300 MG EVERY 15 DAYS
     Route: 058
  9. XOLAIR [Suspect]
     Active Substance: OMALIZUMAB
     Dosage: 300 MG EVERY 15 DAYS
     Route: 065
     Dates: start: 20240210
  10. XOLAIR [Suspect]
     Active Substance: OMALIZUMAB
     Dosage: UNK
     Route: 058
     Dates: start: 20230217
  11. XOLAIR [Suspect]
     Active Substance: OMALIZUMAB
     Dosage: UNK
     Route: 065
     Dates: start: 20220604
  12. BILASTINE [Concomitant]
     Active Substance: BILASTINE
     Indication: Product used for unknown indication
     Dosage: 4 DOSAGE FORM, QD (DAILY ((FAES FARMA) (TWO IN THE MORNING AND TWO AT NIGHT)
     Route: 048
     Dates: start: 2022
  13. DEFLAZACORT [Concomitant]
     Active Substance: DEFLAZACORT
     Indication: Product used for unknown indication
     Dosage: 30 MG
     Route: 065
  14. EUTHYROX [Concomitant]
     Active Substance: LEVOTHYROXINE SODIUM
     Indication: Product used for unknown indication
     Dosage: 100 MG, PRN
     Route: 065
  15. EUTHYROX [Concomitant]
     Active Substance: LEVOTHYROXINE SODIUM
     Dosage: 88 MG, QD
     Route: 065
  16. FEXOFENADINE [Concomitant]
     Active Substance: FEXOFENADINE HYDROCHLORIDE
     Indication: Allergy prophylaxis
     Dosage: 120 MG, QD
     Route: 065
  17. FEXOFENADINE [Concomitant]
     Active Substance: FEXOFENADINE HYDROCHLORIDE
     Dosage: 120 MG (2 PILLS EVERY TWELVE HOURS)
     Route: 065
  18. FEXOFENADINE [Concomitant]
     Active Substance: FEXOFENADINE HYDROCHLORIDE
     Dosage: 120 EVERY 8 HOURS
     Route: 065
  19. FLUOXETINE [Concomitant]
     Active Substance: FLUOXETINE HYDROCHLORIDE
     Indication: Product used for unknown indication
     Dosage: 1 DOSAGE FORM, QD ((LAPROFF) (DAILY IN THE MORNING)
     Route: 048
     Dates: start: 2017
  20. FLUOXETINE [Concomitant]
     Active Substance: FLUOXETINE HYDROCHLORIDE
     Dosage: UNK, PRN
     Route: 048
  21. LEVOTHYROXINE SODIUM [Concomitant]
     Active Substance: LEVOTHYROXINE SODIUM
     Indication: Product used for unknown indication
     Dosage: 1 DOSAGE FORM, QD ((EUTHYROX)(DAILY (1 HOUR BEFORE BREAKFAST))
     Route: 048
     Dates: start: 2010
  22. TRAZODONE [Concomitant]
     Active Substance: TRAZODONE HYDROCHLORIDE
     Indication: Product used for unknown indication
     Dosage: 1 DOSAGE FORM((BUSSIE) (AS NEEDED AT NIGHT)
     Route: 048
     Dates: start: 2020
  23. TRAZODONE [Concomitant]
     Active Substance: TRAZODONE HYDROCHLORIDE
     Dosage: 50 MG (HALF A PILL) BEFORE BED
     Route: 065
  24. TRAZODONE [Concomitant]
     Active Substance: TRAZODONE HYDROCHLORIDE
     Dosage: UNK, PRN
     Route: 048

REACTIONS (21)
  - Swelling face [Recovered/Resolved]
  - Chills [Unknown]
  - Cough [Not Recovered/Not Resolved]
  - Pruritus [Recovered/Resolved]
  - Abdominal pain [Unknown]
  - Pyrexia [Unknown]
  - Urticaria [Unknown]
  - Diarrhoea [Unknown]
  - Arthralgia [Unknown]
  - Discouragement [Unknown]
  - Muscle spasms [Unknown]
  - Swelling [Unknown]
  - Lip swelling [Unknown]
  - Depressed mood [Unknown]
  - Malaise [Unknown]
  - Nasopharyngitis [Unknown]
  - Urticaria [Recovered/Resolved]
  - Oedema [Recovered/Resolved]
  - Headache [Recovered/Resolved]
  - Inflammation [Unknown]
  - Product dose omission issue [Unknown]

NARRATIVE: CASE EVENT DATE: 20220526
